FAERS Safety Report 8106347-X (Version None)
Quarter: 2012Q1

REPORT INFORMATION
  Report Type: 
  Country: None (occurrence: None)
  Receive Date: 20120130
  Receipt Date: 20120117
  Transmission Date: 20120608
  Serious: Yes (Life-Threatening)
  Sender: FDA-Public Use
  Company Number: 2012S1000023

PATIENT
  Age: 44 Year
  Sex: Female

DRUGS (2)
  1. INOMAX DSIR (DELIVERY SYSTEM) [Suspect]
  2. INOMAX [Suspect]
     Indication: HYPOXIA
     Dosage: 20 PPM;CONT;INH
     Route: 055
     Dates: start: 20120113, end: 20120115

REACTIONS (2)
  - DEVICE FAILURE [None]
  - CARDIO-RESPIRATORY ARREST [None]
